FAERS Safety Report 4657026-2 (Version None)
Quarter: 2005Q2

REPORT INFORMATION
  Report Type: 
  Country: None (occurrence: None)
  Receive Date: 20050506
  Receipt Date: 20050420
  Transmission Date: 20051028
  Serious: No
  Sender: FDA-Public Use
  Company Number: 10974

PATIENT

DRUGS (8)
  1. METHOTREXATE [Suspect]
     Indication: ACUTE LYMPHOCYTIC LEUKAEMIA
     Dosage: G/M2 PER CYCLE, IT
  2. VINCRISTINE [Concomitant]
  3. DAUNOMYCIN [Concomitant]
  4. L-ASPARAGINASE [Concomitant]
  5. PREDNISONE [Concomitant]
  6. CYTARABINE [Concomitant]
  7. 6-MARCAPTOPURINE [Concomitant]
  8. CYTARABINE [Concomitant]

REACTIONS (4)
  - BONE MARROW DISORDER [None]
  - BONE MARROW TRANSPLANT [None]
  - DISEASE RECURRENCE [None]
  - WHITE BLOOD CELL COUNT INCREASED [None]
